FAERS Safety Report 26195762 (Version 1)
Quarter: 2025Q4

REPORT INFORMATION
  Report Type: Spontaneous
  Country: EU (occurrence: EU)
  Receive Date: 20251224
  Receipt Date: 20251224
  Transmission Date: 20260117
  Serious: Yes (Other)
  Sender: ELI LILLY AND COMPANY
  Company Number: None

PATIENT
  Age: 50 Year
  Sex: Female
  Weight: 85 kg

DRUGS (3)
  1. MOUNJARO [Suspect]
     Active Substance: TIRZEPATIDE
     Indication: Weight control
     Dosage: 2 DOSAGE FORM, UNKNOWN
     Route: 058
     Dates: start: 20251129, end: 20251206
  2. MOUNJARO [Suspect]
     Active Substance: TIRZEPATIDE
     Indication: Eating disorder symptom
  3. MOUNJARO [Suspect]
     Active Substance: TIRZEPATIDE
     Indication: Body mass index increased

REACTIONS (16)
  - Blood pressure increased [Recovering/Resolving]
  - Heart rate increased [Recovering/Resolving]
  - Thirst [Recovering/Resolving]
  - Headache [Recovering/Resolving]
  - Restlessness [Recovering/Resolving]
  - Anxiety [Recovering/Resolving]
  - Heart rate increased [Recovering/Resolving]
  - Polydipsia [Unknown]
  - Depersonalisation/derealisation disorder [Unknown]
  - Derealisation [Unknown]
  - Muscle fatigue [Unknown]
  - Agitation [Unknown]
  - Cold sweat [Unknown]
  - Palpitations [Recovering/Resolving]
  - Polyuria [Recovering/Resolving]
  - Diarrhoea [Recovering/Resolving]

NARRATIVE: CASE EVENT DATE: 20251201
